FAERS Safety Report 10354559 (Version 2)
Quarter: 2014Q3

REPORT INFORMATION
  Report Type: Spontaneous
  Country: GB (occurrence: GB)
  Receive Date: 20140731
  Receipt Date: 20140815
  Transmission Date: 20150326
  Serious: Yes (Other)
  Sender: FDA-Public Use
  Company Number: GB-WATSON-2014-16255

PATIENT
  Age: 50 Year
  Sex: Male
  Weight: 17 kg

DRUGS (2)
  1. LISINOPRIL (UNKNOWN) [Suspect]
     Active Substance: LISINOPRIL
     Indication: HYPERTENSION
     Dosage: 20 MG, UNKNOWN
     Route: 048
     Dates: start: 20140628, end: 20140703
  2. TEMAZEPAM. [Concomitant]
     Active Substance: TEMAZEPAM
     Indication: KNEE OPERATION
     Dosage: 10 MG, BID
     Route: 065

REACTIONS (4)
  - Lip swelling [Recovered/Resolved]
  - Urticaria [Recovered/Resolved]
  - Eye swelling [Recovered/Resolved]
  - Rash [Recovered/Resolved]

NARRATIVE: CASE EVENT DATE: 20140628
